FAERS Safety Report 9645373 (Version 2)
Quarter: 2013Q4

REPORT INFORMATION
  Report Type: Spontaneous
  Country: JP (occurrence: None)
  Receive Date: 20131023
  Receipt Date: 20131127
  Transmission Date: 20140711
  Serious: Yes (Other)
  Sender: FDA-Public Use
  Company Number: 2013100082

PATIENT
  Age: 77 Year
  Sex: Female

DRUGS (12)
  1. LUPRAC [Suspect]
     Indication: OEDEMA PERIPHERAL
     Dosage: 4 MG, 1 IN 1 D
     Route: 048
     Dates: start: 20121004, end: 20130924
  2. THEODUR [Suspect]
     Indication: CHRONIC OBSTRUCTIVE PULMONARY DISEASE
     Dosage: 200 MG, 1 IN 1 D
     Route: 048
     Dates: start: 20031120, end: 20130923
  3. GASTROM [Suspect]
     Indication: GASTRITIS
     Route: 048
     Dates: start: 20120809
  4. MUCODYNE (CARBOCISTEINE) [Suspect]
     Indication: CHRONIC OBSTRUCTIVE PULMONARY DISEASE
     Route: 048
     Dates: start: 20031120
  5. HOKUNALIN TAPE [Suspect]
     Indication: CHRONIC OBSTRUCTIVE PULMONARY DISEASE
     Route: 061
     Dates: start: 20031120
  6. APLACE [Suspect]
     Indication: GASTRITIS
     Route: 048
  7. SPIRIVA [Suspect]
     Indication: CHRONIC OBSTRUCTIVE PULMONARY DISEASE
     Dosage: RESPIRATORY (INHALATION)
     Dates: start: 20110705
  8. NEXIUM [Suspect]
     Indication: GASTRIC ULCER
     Route: 048
     Dates: start: 20121101, end: 20130924
  9. BAKTAR (SULFAMETHOXAZOLE TRIMETHOPRIM) [Concomitant]
  10. URSO (URSODEOXYCHOLIC ACID) [Concomitant]
  11. MAGLAX [Suspect]
  12. EXJADE (DEFERASIROX) [Concomitant]

REACTIONS (1)
  - Aplasia pure red cell [None]
